FAERS Safety Report 10476637 (Version 1)
Quarter: 2014Q3

REPORT INFORMATION
  Report Type: Report from Study
  Country: US (occurrence: US)
  Receive Date: 20140925
  Receipt Date: 20140925
  Transmission Date: 20150326
  Serious: Yes (Other)
  Sender: FDA-Public Use
  Company Number: US-SA-2014SA130259

PATIENT
  Sex: Female

DRUGS (2)
  1. LANTUS SOLOSTAR [Suspect]
     Active Substance: INSULIN GLARGINE
     Indication: DIABETES MELLITUS
     Dosage: DOSE- 20 UNITS QAM AND 52 UNITS QPM
     Route: 065
     Dates: start: 20120822
  2. SOLOSTAR [Concomitant]
     Active Substance: DEVICE
     Dates: start: 20120822

REACTIONS (2)
  - Epilepsy [Unknown]
  - Drug administration error [Unknown]
